FAERS Safety Report 13089983 (Version 1)
Quarter: 2017Q1

REPORT INFORMATION
  Report Type: Spontaneous
  Country: DE (occurrence: DE)
  Receive Date: 20170105
  Receipt Date: 20170105
  Transmission Date: 20170428
  Serious: No
  Sender: FDA-Public Use
  Company Number: DE-MERZ NORTH AMERICA, INC.-17MRZ-00004

PATIENT
  Age: 40 Year
  Sex: Female

DRUGS (2)
  1. XEOMIN [Suspect]
     Active Substance: INCOBOTULINUMTOXINA
     Indication: SKIN WRINKLING
     Dosage: 1 IN 1 TOTAL
     Dates: start: 20160107, end: 20160107
  2. XEOMIN [Suspect]
     Active Substance: INCOBOTULINUMTOXINA
     Dosage: 1 IN 1 TOTAL
     Dates: start: 20151209, end: 20151209

REACTIONS (4)
  - Respiratory distress [Recovered/Resolved]
  - Somnolence [Recovered/Resolved]
  - Respiratory distress [Recovered/Resolved]
  - Somnolence [Recovered/Resolved]

NARRATIVE: CASE EVENT DATE: 20150111
